FAERS Safety Report 9141708 (Version 2)
Quarter: 2013Q1

REPORT INFORMATION
  Report Type: Spontaneous
  Country: FR (occurrence: FR)
  Receive Date: 20130305
  Receipt Date: 20130311
  Transmission Date: 20140127
  Serious: Yes (Other)
  Sender: FDA-Public Use
  Company Number: FR-GILEAD-2013-0070826

PATIENT
  Sex: Female

DRUGS (12)
  1. VIREAD [Suspect]
     Indication: HEPATITIS B
     Dosage: UNK
     Route: 048
     Dates: start: 201101, end: 201210
  2. ONGLYZA [Concomitant]
     Dosage: UNK
     Dates: end: 201210
  3. GLUCOPHAGE [Concomitant]
     Indication: DIABETES MELLITUS
  4. BARACLUDE [Concomitant]
     Dosage: UNK
     Dates: start: 200909
  5. CELLCEPT                           /01275102/ [Concomitant]
     Dosage: UNK
     Dates: start: 2007
  6. PROGRAF [Concomitant]
     Dosage: UNK
     Dates: start: 2007
  7. DIFFU K [Concomitant]
     Dosage: UNK
     Dates: start: 2007
  8. CALCIDIA [Concomitant]
     Dosage: UNK
     Dates: start: 2007
  9. AMLOR [Concomitant]
  10. TAREG [Concomitant]
     Dosage: UNK
     Dates: start: 2011
  11. CELECTOL [Concomitant]
  12. SPIRONOLACTONE [Concomitant]
     Dosage: UNK
     Dates: start: 2011

REACTIONS (1)
  - Rhabdomyolysis [Recovered/Resolved]
